FAERS Safety Report 9420194 (Version 4)
Quarter: 2013Q3

REPORT INFORMATION
  Report Type: Spontaneous
  Country: US (occurrence: US)
  Receive Date: 20130725
  Receipt Date: 20130905
  Transmission Date: 20140515
  Serious: Yes (Other)
  Sender: FDA-Public Use
  Company Number: US-BAYER-2013-089680

PATIENT
  Age: 29 Year
  Sex: Female
  Weight: 92.52 kg

DRUGS (3)
  1. MIRENA [Suspect]
     Indication: CONTRACEPTION
     Dosage: 20 MCG/24HR, CONT
     Route: 015
     Dates: start: 20100506, end: 20130708
  2. MIRENA [Suspect]
     Indication: CONTRACEPTION
     Dosage: 20 MCG/24HR, CONT
     Route: 015
     Dates: start: 201305, end: 201305
  3. XANAX [Concomitant]

REACTIONS (5)
  - Embedded device [Unknown]
  - Pelvic pain [Unknown]
  - Coital bleeding [None]
  - Abdominal pain upper [Unknown]
  - Vaginal haemorrhage [None]
